FAERS Safety Report 13579614 (Version 1)
Quarter: 2017Q2

REPORT INFORMATION
  Report Type: Report from Study
  Country: US (occurrence: US)
  Receive Date: 20170525
  Receipt Date: 20170525
  Transmission Date: 20170830
  Serious: Yes (Other)
  Sender: FDA-Public Use
  Company Number: PHEH2017US015588

PATIENT
  Age: 53 Year
  Sex: Female

DRUGS (1)
  1. GILENYA [Suspect]
     Active Substance: FINGOLIMOD HYDROCHLORIDE
     Indication: RELAPSING-REMITTING MULTIPLE SCLEROSIS
     Dosage: 0.5 MG, QD
     Route: 048
     Dates: start: 20170522

REACTIONS (7)
  - Immunodeficiency [Unknown]
  - Stress [Unknown]
  - Fatigue [Unknown]
  - Memory impairment [Unknown]
  - Bone pain [Unknown]
  - Irritability [Unknown]
  - Vision blurred [Unknown]

NARRATIVE: CASE EVENT DATE: 20170522
